FAERS Safety Report 9239230 (Version 1)
Quarter: 2013Q2

REPORT INFORMATION
  Report Type: Report from Study
  Country: MX (occurrence: MX)
  Receive Date: 20130418
  Receipt Date: 20130418
  Transmission Date: 20140414
  Serious: Yes (Hospitalization, Other)
  Sender: FDA-Public Use
  Company Number: PHHY2012MX049308

PATIENT
  Age: 12 Year
  Sex: Female

DRUGS (3)
  1. TRILEPTAL [Suspect]
     Indication: EPILEPSY
     Dosage: 0.5 DF, QD (300 MG)
     Route: 048
     Dates: start: 2008
  2. TRILEPTAL [Suspect]
     Dosage: 4 DF, DAILY
     Route: 048
  3. LAMOTRICINA [Concomitant]
     Indication: EPILEPSY
     Dosage: 5 DF, DAILY
     Route: 048

REACTIONS (3)
  - Pancreatic injury [Recovered/Resolved]
  - Pancreatic enzymes increased [Recovered/Resolved]
  - Epilepsy [Recovering/Resolving]
